FAERS Safety Report 22272853 (Version 2)
Quarter: 2023Q2

REPORT INFORMATION
  Report Type: Spontaneous
  Country: JP (occurrence: JP)
  Receive Date: 20230502
  Receipt Date: 20230529
  Transmission Date: 20230722
  Serious: Yes (Death)
  Sender: FDA-Public Use
  Company Number: JP-JNJFOC-20230464524

PATIENT
  Age: 82 Year
  Sex: Male

DRUGS (7)
  1. UPTRAVI [Suspect]
     Active Substance: SELEXIPAG
     Indication: Pulmonary arterial hypertension
     Route: 048
     Dates: start: 20220705
  2. UPTRAVI [Suspect]
     Active Substance: SELEXIPAG
     Route: 048
     Dates: start: 20220808, end: 20230111
  3. AZOSEMIDE [Concomitant]
     Active Substance: AZOSEMIDE
  4. JARDIANCE [Concomitant]
     Active Substance: EMPAGLIFLOZIN
  5. MAGNESIUM OXIDE [Concomitant]
     Active Substance: MAGNESIUM OXIDE
  6. RABEPRAZOLE SODIUM [Concomitant]
     Active Substance: RABEPRAZOLE SODIUM
  7. LIMAPROST [Concomitant]
     Active Substance: LIMAPROST

REACTIONS (1)
  - Cardiac failure [Fatal]

NARRATIVE: CASE EVENT DATE: 20230114
